FAERS Safety Report 18809179 (Version 1)
Quarter: 2021Q1

REPORT INFORMATION
  Report Type: Spontaneous
  Country: US (occurrence: US)
  Receive Date: 20210129
  Receipt Date: 20210129
  Transmission Date: 20210419
  Serious: Yes (Hospitalization, Other)
  Sender: FDA-Public Use
  Company Number: US-ABBVIE-21K-163-3750108-00

PATIENT
  Sex: Male

DRUGS (1)
  1. LUPRON DEPOT [Suspect]
     Active Substance: LEUPROLIDE ACETATE
     Indication: PROSTATE CANCER STAGE IV
     Route: 065
     Dates: start: 2016

REACTIONS (8)
  - Hip arthroplasty [Unknown]
  - Hospitalisation [Unknown]
  - Neuropathy peripheral [Unknown]
  - Surgery [Unknown]
  - Arthritis [Unknown]
  - Skin cancer [Unknown]
  - Bedridden [Unknown]
  - Peripheral swelling [Unknown]

NARRATIVE: CASE EVENT DATE: 202003
